FAERS Safety Report 7218342-3 (Version None)
Quarter: 2011Q1

REPORT INFORMATION
  Report Type: 
  Country: None (occurrence: None)
  Receive Date: 20110110
  Receipt Date: 20110105
  Transmission Date: 20110831
  Serious: Yes (Other)
  Sender: FDA-Public Use
  Company Number: US-PFIZER INC-2011003182

PATIENT
  Sex: Male
  Weight: 86.168 kg

DRUGS (3)
  1. NAPROXEN [Concomitant]
     Indication: PAIN
     Dosage: UNK
  2. CHANTIX [Suspect]
     Indication: SMOKING CESSATION THERAPY
     Dosage: 1 MG, 2X/DAY
     Route: 048
     Dates: start: 20100715
  3. IBUPROFEN [Concomitant]
     Indication: PAIN
     Dosage: UNK

REACTIONS (1)
  - MUSCLE SPASMS [None]
